FAERS Safety Report 14419177 (Version 1)
Quarter: 2018Q1

REPORT INFORMATION
  Report Type: Spontaneous
  Country: US (occurrence: US)
  Receive Date: 20180122
  Receipt Date: 20180122
  Transmission Date: 20180509
  Serious: Yes (Other)
  Sender: FDA-Public Use
  Company Number: US-ASTRAZENECA-2018SE06265

PATIENT
  Age: 76 Year
  Sex: Male

DRUGS (5)
  1. TRAMADOL. [Concomitant]
     Active Substance: TRAMADOL
     Dosage: AS NEEDED
  2. BRILINTA [Suspect]
     Active Substance: TICAGRELOR
     Indication: STENT PLACEMENT
     Route: 048
     Dates: start: 201704
  3. ATORVASTATIN [Concomitant]
     Active Substance: ATORVASTATIN
  4. ASA [Concomitant]
     Active Substance: ASPIRIN
  5. BRILINTA [Suspect]
     Active Substance: TICAGRELOR
     Indication: MYOCARDIAL INFARCTION
     Route: 048
     Dates: start: 201704

REACTIONS (2)
  - Sleep apnoea syndrome [Unknown]
  - Dyspnoea [Unknown]
